FAERS Safety Report 21568024 (Version 1)
Quarter: 2022Q4

REPORT INFORMATION
  Report Type: Spontaneous
  Country: BR (occurrence: BR)
  Receive Date: 20221108
  Receipt Date: 20221108
  Transmission Date: 20230113
  Serious: Yes (Other)
  Sender: FDA-Public Use
  Company Number: BR-PFIZER INC-202201282791

PATIENT
  Sex: Female

DRUGS (2)
  1. LORAZEPAM [Suspect]
     Active Substance: LORAZEPAM
  2. CELESTAMINE [BETAMETHASONE;LORATADINE] [Concomitant]

REACTIONS (4)
  - Pneumonia [Unknown]
  - Illness [Unknown]
  - Rhinitis [Unknown]
  - Drug hypersensitivity [Unknown]
